FAERS Safety Report 4418225-8 (Version None)
Quarter: 2004Q3

REPORT INFORMATION
  Report Type: 
  Country: None (occurrence: None)
  Receive Date: 20040809
  Receipt Date: 20040109
  Transmission Date: 20050211
  Serious: Yes (Other)
  Sender: FDA-Public Use
  Company Number: US-GLAXOSMITHKLINE-A0492274A

PATIENT
  Age: 31 Year
  Sex: Female
  Weight: 45.5 kg

DRUGS (1)
  1. PAXIL [Suspect]
     Dosage: 12.5MG PER DAY
     Route: 048
     Dates: start: 20030301, end: 20030301

REACTIONS (3)
  - AGGRESSION [None]
  - MANIA [None]
  - PSYCHOTIC DISORDER [None]
